FAERS Safety Report 11825606 (Version 3)
Quarter: 2016Q4

REPORT INFORMATION
  Report Type: Spontaneous
  Country: US (occurrence: US)
  Receive Date: 20151211
  Receipt Date: 20161121
  Transmission Date: 20170206
  Serious: No
  Sender: FDA-Public Use
  Company Number: US-JNJFOC-20150819979

PATIENT
  Age: 62 Year
  Sex: Male

DRUGS (5)
  1. IMBRUVICA [Suspect]
     Active Substance: IBRUTINIB
     Indication: MANTLE CELL LYMPHOMA
     Route: 048
     Dates: start: 20150201
  2. METFORMIN [Concomitant]
     Active Substance: METFORMIN HYDROCHLORIDE
  3. XARELTO [Concomitant]
     Active Substance: RIVAROXABAN
  4. GLIPIZIDE. [Concomitant]
     Active Substance: GLIPIZIDE
  5. LANTUS [Concomitant]
     Active Substance: INSULIN GLARGINE

REACTIONS (10)
  - Increased tendency to bruise [Not Recovered/Not Resolved]
  - Haemorrhagic diathesis [Unknown]
  - Insomnia [Unknown]
  - Fatigue [Not Recovered/Not Resolved]
  - Libido decreased [Not Recovered/Not Resolved]
  - Drug dose omission [Recovered/Resolved]
  - Acne [Not Recovered/Not Resolved]
  - Asthenia [Unknown]
  - Rash pruritic [Not Recovered/Not Resolved]
  - Nasopharyngitis [Not Recovered/Not Resolved]

NARRATIVE: CASE EVENT DATE: 2015
